FAERS Safety Report 14630460 (Version 2)
Quarter: 2018Q1

REPORT INFORMATION
  Report Type: Spontaneous
  Country: US (occurrence: US)
  Receive Date: 20180313
  Receipt Date: 20180327
  Transmission Date: 20180509
  Serious: Yes (Hospitalization, Other)
  Sender: FDA-Public Use
  Company Number: US-AMGEN-USASP2018031872

PATIENT
  Age: 75 Year
  Sex: Female

DRUGS (2)
  1. XGEVA [Suspect]
     Active Substance: DENOSUMAB
     Indication: BREAST CANCER METASTATIC
     Dosage: 15 MG,
     Route: 065
     Dates: start: 201403, end: 201706
  2. XTANDI [Concomitant]
     Active Substance: ENZALUTAMIDE
     Indication: BREAST CANCER
     Dosage: 40 MG/4 CAPSULES/QD

REACTIONS (2)
  - Femur fracture [Recovering/Resolving]
  - Gait disturbance [Unknown]
